FAERS Safety Report 7124857-9 (Version None)
Quarter: 2010Q4

REPORT INFORMATION
  Report Type: 
  Country: None (occurrence: None)
  Receive Date: 20101129
  Receipt Date: 20101115
  Transmission Date: 20110411
  Serious: Yes (Other)
  Sender: FDA-Public Use
  Company Number: JP-JNJFOC-20101106698

PATIENT
  Age: 39 Year
  Sex: Female

DRUGS (1)
  1. RISPERDAL [Suspect]
     Indication: ILL-DEFINED DISORDER
     Route: 048

REACTIONS (4)
  - DYSURIA [None]
  - PYREXIA [None]
  - SWEAT GLAND DISORDER [None]
  - TEMPERATURE REGULATION DISORDER [None]
